FAERS Safety Report 7753488-2 (Version None)
Quarter: 2011Q3

REPORT INFORMATION
  Report Type: 
  Country: None (occurrence: None)
  Receive Date: 20110915
  Receipt Date: 20110810
  Transmission Date: 20111222
  Serious: Yes (Other)
  Sender: FDA-Public Use
  Company Number: PHHY2010DE57938

PATIENT
  Age: 89 Year
  Sex: Female

DRUGS (2)
  1. EXELON [Suspect]
     Dosage: UNK UKN, UNK
     Route: 062
  2. EXELON [Suspect]
     Dosage: UNK UKN, UNK
     Route: 048

REACTIONS (4)
  - APATHY [None]
  - PRURITUS [None]
  - ERYTHEMA [None]
  - CEREBRAL HAEMORRHAGE [None]
